FAERS Safety Report 15589759 (Version 1)
Quarter: 2018Q4

REPORT INFORMATION
  Report Type: Report from Study
  Country: US (occurrence: US)
  Receive Date: 20181106
  Receipt Date: 20181106
  Transmission Date: 20190205
  Serious: Yes (Hospitalization, Other)
  Sender: FDA-Public Use
  Company Number: PHEH2018US046354

PATIENT
  Age: 27 Year
  Sex: Female
  Weight: 63.49 kg

DRUGS (1)
  1. GILENYA [Suspect]
     Active Substance: FINGOLIMOD HYDROCHLORIDE
     Indication: PRODUCT USED FOR UNKNOWN INDICATION
     Dosage: 0.5 MG, QD
     Route: 048
     Dates: start: 20181004, end: 20181024

REACTIONS (10)
  - Nausea [Unknown]
  - Fall [Unknown]
  - Noninfective encephalitis [Unknown]
  - Speech disorder [Unknown]
  - Dizziness [Unknown]
  - Seizure [Unknown]
  - Feeling abnormal [Unknown]
  - Coordination abnormal [Unknown]
  - Asthenia [Unknown]
  - Disorientation [Unknown]

NARRATIVE: CASE EVENT DATE: 20181025
